FAERS Safety Report 18290053 (Version 2)
Quarter: 2020Q4

REPORT INFORMATION
  Report Type: Spontaneous
  Country: US (occurrence: US)
  Receive Date: 20200921
  Receipt Date: 20201117
  Transmission Date: 20210113
  Serious: Yes (Hospitalization, Other)
  Sender: FDA-Public Use
  Company Number: US-GLENMARK PHARMACEUTICALS-2020GMK049586

PATIENT

DRUGS (3)
  1. NITROGLYCERIN SUBLINGUAL TABLETS USP 0.4 MG [Suspect]
     Active Substance: NITROGLYCERIN
     Indication: CHEST PAIN
     Dosage: UNK; EFFECTIVE BATCH
     Route: 060
     Dates: start: 201902
  2. NITROGLYCERIN SUBLINGUAL TABLETS USP 0.4 MG [Suspect]
     Active Substance: NITROGLYCERIN
     Dosage: UNK; DEFECTIVE BATCH (CHEWED IT)
     Route: 048
     Dates: start: 2020, end: 2020
  3. NITROGLYCERIN SUBLINGUAL TABLETS USP 0.4 MG [Suspect]
     Active Substance: NITROGLYCERIN
     Dosage: UNK; NEW BATCH
     Route: 060
     Dates: start: 2020

REACTIONS (4)
  - Wrong technique in product usage process [Unknown]
  - Loss of consciousness [Recovered/Resolved]
  - Product solubility abnormal [Unknown]
  - Product quality issue [Unknown]

NARRATIVE: CASE EVENT DATE: 202008
